FAERS Safety Report 10144573 (Version 2)
Quarter: 2015Q2

REPORT INFORMATION
  Report Type: Spontaneous
  Country: US (occurrence: US)
  Receive Date: 20140430
  Receipt Date: 20150422
  Transmission Date: 20150821
  Serious: No
  Sender: FDA-Public Use
  Company Number: US-SA-2014SA036255

PATIENT
  Age: 59 Year
  Sex: Female

DRUGS (1)
  1. LOVENOX [Suspect]
     Active Substance: ENOXAPARIN SODIUM
     Indication: THROMBOCYTOSIS
     Route: 065
     Dates: start: 201401

REACTIONS (2)
  - Injection site pain [Unknown]
  - Visual acuity reduced [Not Recovered/Not Resolved]
